FAERS Safety Report 9580441 (Version 1)
Quarter: 2013Q3

REPORT INFORMATION
  Report Type: Spontaneous
  Country: US (occurrence: None)
  Receive Date: 20130916
  Receipt Date: 20130916
  Transmission Date: 20140515
  Serious: Yes (Other)
  Sender: FDA-Public Use
  Company Number: JPI-P-032219

PATIENT
  Age: 56 Year
  Sex: Female

DRUGS (2)
  1. XYREM [Suspect]
     Indication: CATAPLEXY
     Route: 048
     Dates: start: 20130504, end: 20130515
  2. PROVIGIL [Concomitant]

REACTIONS (4)
  - Self-injurious ideation [None]
  - Major depression [None]
  - Condition aggravated [None]
  - Apathy [None]
